FAERS Safety Report 7676102-3 (Version None)
Quarter: 2011Q3

REPORT INFORMATION
  Report Type: 
  Country: None (occurrence: None)
  Receive Date: 20110805
  Receipt Date: 20110721
  Transmission Date: 20111222
  Serious: Yes (Life-Threatening, Hospitalization)
  Sender: FDA-Public Use
  Company Number: 2011MA009232

PATIENT
  Age: 69 Year
  Sex: Male
  Weight: 105 kg

DRUGS (6)
  1. VANCOMYCIN [Suspect]
     Indication: IMPLANTABLE DEFIBRILLATOR INSERTION
     Dosage: 1 G ; UNK; IV
     Route: 042
  2. PROPOFOL [Suspect]
     Indication: IMPLANTABLE DEFIBRILLATOR INSERTION
     Dosage: 50 MG; UNK; IV
     Route: 042
  3. BACITRACIN ZINC [Suspect]
     Indication: INFECTION PROPHYLAXIS
     Dosage: ; UNK; IRRG
  4. MIDAZOLAM HCL [Suspect]
     Indication: IMPLANTABLE DEFIBRILLATOR INSERTION
     Dosage: 11 MG; UNK; IV
     Route: 042
  5. FENTANYL [Suspect]
     Indication: IMPLANTABLE DEFIBRILLATOR INSERTION
     Dosage: 60 MG; UNK;IV
     Route: 042
  6. PROPOFOL [Suspect]
     Indication: IMPLANTABLE DEFIBRILLATOR INSERTION
     Dosage: 50 MG;UNK;IV
     Route: 042

REACTIONS (1)
  - ANAPHYLACTIC REACTION [None]
